FAERS Safety Report 25573070 (Version 2)
Quarter: 2025Q3

REPORT INFORMATION
  Report Type: Spontaneous
  Country: US (occurrence: US)
  Receive Date: 20250717
  Receipt Date: 20250722
  Transmission Date: 20251020
  Serious: No
  Sender: SANOFI AVENTIS
  Company Number: US-SA-2025SA202521

PATIENT
  Age: 38 Year
  Sex: Female
  Weight: 58.5 kg

DRUGS (12)
  1. DUPIXENT [Suspect]
     Active Substance: DUPILUMAB
     Indication: Nasal polyps
     Dosage: 300 MG, QOW
  2. NITROGLYCERIN [Concomitant]
     Active Substance: NITROGLYCERIN
  3. VITAMIN D2 [Concomitant]
     Active Substance: ERGOCALCIFEROL
  4. DILTIAZEM [Concomitant]
     Active Substance: DILTIAZEM
  5. LORATADINE [Concomitant]
     Active Substance: LORATADINE
  6. TRIAMCINOLONE ACETONIDE [Concomitant]
     Active Substance: TRIAMCINOLONE ACETONIDE
  7. ACETAMINOPHEN [Concomitant]
     Active Substance: ACETAMINOPHEN
  8. ALPRAZOLAM [Concomitant]
     Active Substance: ALPRAZOLAM
  9. VITAMINS [Concomitant]
     Active Substance: VITAMINS
  10. IBUPROFEN [Concomitant]
     Active Substance: IBUPROFEN
  11. PEPTO-BISMOL [Concomitant]
     Active Substance: BISMUTH SUBSALICYLATE
  12. FLONASE ALLERGY RELIEF [Concomitant]
     Active Substance: FLUTICASONE PROPIONATE

REACTIONS (2)
  - Accidental exposure to product [Unknown]
  - Exposure via skin contact [Unknown]

NARRATIVE: CASE EVENT DATE: 20250715
